FAERS Safety Report 7450676-X (Version None)
Quarter: 2011Q2

REPORT INFORMATION
  Report Type: 
  Country: None (occurrence: None)
  Receive Date: 20110502
  Receipt Date: 20110502
  Transmission Date: 20111010
  Serious: Yes (Other)
  Sender: FDA-Public Use
  Company Number: JP-PFIZER INC-2011093305

PATIENT
  Age: 74 Year
  Sex: Female

DRUGS (1)
  1. GABAPEN [Suspect]
     Dosage: UNK

REACTIONS (2)
  - VISUAL IMPAIRMENT [None]
  - MOTOR DYSFUNCTION [None]
